FAERS Safety Report 10308607 (Version 1)
Quarter: 2014Q3

REPORT INFORMATION
  Report Type: Spontaneous
  Country: US (occurrence: US)
  Receive Date: 20140716
  Receipt Date: 20140716
  Transmission Date: 20150326
  Serious: Yes (Other)
  Sender: FDA-Public Use
  Company Number: PHHY2014US084811

PATIENT
  Age: 27 Year
  Sex: Female

DRUGS (5)
  1. VINCRISTINE [Suspect]
     Active Substance: VINCRISTINE
  2. METHOTREXATE [Suspect]
     Active Substance: METHOTREXATE
  3. DACTINOMYCIN [Suspect]
     Active Substance: DACTINOMYCIN
  4. CYCLOPHOSPHAMIDE. [Suspect]
     Active Substance: CYCLOPHOSPHAMIDE
  5. ETOPOSIDE. [Suspect]
     Active Substance: ETOPOSIDE

REACTIONS (4)
  - Fatigue [Unknown]
  - Petechiae [Unknown]
  - Acute myeloid leukaemia [Unknown]
  - Oropharyngeal pain [Unknown]
